FAERS Safety Report 11287315 (Version 1)
Quarter: 2015Q3

REPORT INFORMATION
  Report Type: Spontaneous
  Country: US (occurrence: None)
  Receive Date: 20150720
  Receipt Date: 20150720
  Transmission Date: 20151125
  Serious: Yes (Other)
  Sender: FDA-Public Use
  Company Number: None

PATIENT
  Age: 36 Year
  Sex: Female
  Weight: 93.44 kg

DRUGS (2)
  1. PENNSAID [Suspect]
     Active Substance: DICLOFENAC SODIUM
     Indication: ROTATOR CUFF SYNDROME
     Dosage: 1 PACKET IN MORNING + APPLIED TO A SURFACE, USUALLY THE SKIN
     Dates: start: 20150715, end: 20150717
  2. PENNSAID [Suspect]
     Active Substance: DICLOFENAC SODIUM
     Indication: MUSCULOSKELETAL PAIN
     Dosage: 1 PACKET IN MORNING + APPLIED TO A SURFACE, USUALLY THE SKIN
     Dates: start: 20150715, end: 20150717

REACTIONS (3)
  - Application site abscess [None]
  - Application site exfoliation [None]
  - Application site rash [None]

NARRATIVE: CASE EVENT DATE: 20150715
